FAERS Safety Report 8319061-2 (Version None)
Quarter: 2012Q2

REPORT INFORMATION
  Report Type: 
  Country: None (occurrence: None)
  Receive Date: 20120427
  Receipt Date: 20120420
  Transmission Date: 20120825
  Serious: Yes (Other)
  Sender: FDA-Public Use
  Company Number: US-ACTELION-A-NJ2012-64674

PATIENT

DRUGS (3)
  1. VENTAVIS [Suspect]
     Indication: PULMONARY ARTERIAL HYPERTENSION
     Dosage: UNK
     Route: 055
     Dates: start: 20110318
  2. CALCIUM CHANNEL BLOCKERS [Concomitant]
  3. SILDENAFIL [Concomitant]

REACTIONS (3)
  - CHEMOTHERAPY [None]
  - FATIGUE [None]
  - NAUSEA [None]
